FAERS Safety Report 9358616 (Version 3)
Quarter: 2013Q3

REPORT INFORMATION
  Report Type: Spontaneous
  Country: JP (occurrence: JP)
  Receive Date: 20130620
  Receipt Date: 20130701
  Transmission Date: 20140515
  Serious: Yes (Death, Other)
  Sender: FDA-Public Use
  Company Number: PHHY2013JP062132

PATIENT
  Age: 60 Year
  Sex: Male

DRUGS (2)
  1. PACLITAXEL [Suspect]
     Indication: LUNG ADENOCARCINOMA
  2. CARBOPLATIN [Suspect]
     Indication: LUNG ADENOCARCINOMA

REACTIONS (7)
  - Pneumonia bacterial [Fatal]
  - Pulmonary alveolar haemorrhage [Fatal]
  - Haemoptysis [Fatal]
  - Hypoxia [Fatal]
  - Chest pain [Fatal]
  - Shock [Unknown]
  - Neutropenia [Unknown]
